FAERS Safety Report 9596012 (Version 1)
Quarter: 2013Q4

REPORT INFORMATION
  Report Type: Spontaneous
  Country: US (occurrence: US)
  Receive Date: 20131004
  Receipt Date: 20131004
  Transmission Date: 20140711
  Serious: No
  Sender: FDA-Public Use
  Company Number: US-BAYER-2013-115566

PATIENT
  Age: 73 Year
  Sex: Female

DRUGS (1)
  1. CIPRO [Suspect]
     Indication: STAPHYLOCOCCAL INFECTION
     Dosage: 1 DF, BID
     Dates: start: 20130917, end: 20130921

REACTIONS (1)
  - Limb discomfort [Not Recovered/Not Resolved]
